FAERS Safety Report 7586564-8 (Version None)
Quarter: 2011Q3

REPORT INFORMATION
  Report Type: 
  Country: None (occurrence: None)
  Receive Date: 20110701
  Receipt Date: 20110322
  Transmission Date: 20111222
  Serious: No
  Sender: FDA-Public Use
  Company Number: US-BAYER-2011-026361

PATIENT
  Age: 99 Year
  Sex: Male
  Weight: 82 kg

DRUGS (1)
  1. ALEVE (CAPLET) [Suspect]
     Dosage: UNK, QD
     Route: 048
     Dates: start: 20101101, end: 20110323

REACTIONS (1)
  - DIZZINESS [None]
